FAERS Safety Report 25155935 (Version 1)
Quarter: 2025Q2

REPORT INFORMATION
  Report Type: Spontaneous
  Country: FR (occurrence: FR)
  Receive Date: 20250403
  Receipt Date: 20250403
  Transmission Date: 20250717
  Serious: Yes (Other)
  Sender: MERCK SHARP & DOHME LLC
  Company Number: None

PATIENT
  Age: 66 Year
  Sex: Male

DRUGS (1)
  1. SITAGLIPTIN PHOSPHATE [Suspect]
     Active Substance: SITAGLIPTIN PHOSPHATE
     Indication: Type 2 diabetes mellitus
     Route: 048
     Dates: start: 20230601, end: 2025

REACTIONS (1)
  - Dermatitis bullous [Recovered/Resolved]

NARRATIVE: CASE EVENT DATE: 20241018
